FAERS Safety Report 7221645 (Version 6)
Quarter: 2013Q3

REPORT INFORMATION
  Report Type: Report from Study
  Country: BE (occurrence: BE)
  Receive Date: 20091217
  Receipt Date: 20130726
  Transmission Date: 20140515
  Serious: Yes (Hospitalization)
  Sender: FDA-Public Use
  Company Number: BE-ROCHE-657459

PATIENT
  Age: 66 Year
  Sex: Female
  Weight: 68.4 kg

DRUGS (10)
  1. TRASTUZUMAB [Suspect]
     Indication: BREAST CANCER
     Dosage: TOTAL DOSE: 410 MG, DOSAGE FORM:VIALS. DATE OF LAST DOSE PRIOR TO SAE: 02 SEP 2009 (LOADING DOSE)
     Route: 042
  2. TRASTUZUMAB [Suspect]
     Dosage: MAINTENANCE DOSE.
     Route: 042
  3. BEVACIZUMAB [Suspect]
     Indication: BREAST CANCER
     Dosage: TOTAL DOSE: 1020 MG, DOSAGE FORM: VIALS. DATE OF LAST DOSE PRIOR TO SAE: 02 SEP 2009
     Route: 042
  4. DOCETAXEL [Suspect]
     Indication: BREAST CANCER
     Dosage: TOTAL DOSE: 110 MG, DOSAGE FORM: VIALS. DATE OF LAST DOSE PRIOR TO SAE: 13 AUG 2009
     Route: 042
  5. CARBOPLATIN [Suspect]
     Indication: BREAST CANCER
     Dosage: DOSE LEVEL: 6 AUC,DOSAGE FORM: VIALS. DATE OF LAST DOSE PRIOR TO SAE: 13 AUG 2009. TOTAL DOSE:470 MG
     Route: 042
  6. DAFALGAN [Concomitant]
     Dosage: FREQUENCY: PRN
     Route: 048
  7. NEUROBION [Concomitant]
     Route: 030
  8. TOBREX [Concomitant]
     Dosage: DRUG NAME REPORTED AS 5 DER/D
     Route: 065
  9. MEDROL [Concomitant]
     Dosage: MEDROL 16 MG
     Route: 048
     Dates: start: 20090912, end: 20090915
  10. OMEPRAZOLE [Concomitant]

REACTIONS (2)
  - Cardiomyopathy [Recovered/Resolved]
  - Pneumonia [Recovered/Resolved]
